FAERS Safety Report 10817356 (Version 1)
Quarter: 2015Q1

REPORT INFORMATION
  Report Type: Report from Study
  Country: US (occurrence: US)
  Receive Date: 20150218
  Receipt Date: 20150218
  Transmission Date: 20150721
  Serious: Yes (Hospitalization)
  Sender: FDA-Public Use
  Company Number: US-ABBVIE-14K-163-1288216-00

PATIENT
  Age: 28 Year
  Sex: Male
  Weight: 122.58 kg

DRUGS (5)
  1. HUMIRA [Suspect]
     Active Substance: ADALIMUMAB
     Dates: start: 201402, end: 201402
  2. HUMIRA [Suspect]
     Active Substance: ADALIMUMAB
     Dates: start: 201403, end: 201404
  3. HUMIRA [Suspect]
     Active Substance: ADALIMUMAB
     Dates: start: 201405
  4. AZATHIOPRINE. [Concomitant]
     Active Substance: AZATHIOPRINE
     Indication: PRODUCT USED FOR UNKNOWN INDICATION
  5. HUMIRA [Suspect]
     Active Substance: ADALIMUMAB
     Indication: CROHN^S DISEASE
     Dosage: CROHN^S STARTER KIT
     Dates: start: 201402, end: 201402

REACTIONS (1)
  - Crohn^s disease [Recovering/Resolving]

NARRATIVE: CASE EVENT DATE: 201404
